FAERS Safety Report 6020690-X (Version None)
Quarter: 2008Q4

REPORT INFORMATION
  Report Type: 
  Country: None (occurrence: None)
  Receive Date: 20081222
  Receipt Date: 20081209
  Transmission Date: 20090506
  Serious: Yes (Other)
  Sender: FDA-Public Use
  Company Number: OSCN-NO-0812L-0660

PATIENT
  Age: 24 Year
  Sex: Female

DRUGS (8)
  1. OMNISCAN [Suspect]
     Indication: ABDOMINAL PAIN
     Dosage: 10 ML, SINGLE DOSE; 10 ML, SINGLE DOSE; 10 ML, SINGLE DOSE; 20 ML, SINGLE DOSE
     Dates: start: 20050121, end: 20050121
  2. OMNISCAN [Suspect]
     Indication: CEREBROVASCULAR ACCIDENT
     Dosage: 10 ML, SINGLE DOSE; 10 ML, SINGLE DOSE; 10 ML, SINGLE DOSE; 20 ML, SINGLE DOSE
     Dates: start: 20050121, end: 20050121
  3. OMNISCAN [Suspect]
     Indication: ABDOMINAL PAIN
     Dosage: 10 ML, SINGLE DOSE; 10 ML, SINGLE DOSE; 10 ML, SINGLE DOSE; 20 ML, SINGLE DOSE
     Dates: start: 20050207, end: 20050207
  4. OMNISCAN [Suspect]
     Indication: CEREBROVASCULAR ACCIDENT
     Dosage: 10 ML, SINGLE DOSE; 10 ML, SINGLE DOSE; 10 ML, SINGLE DOSE; 20 ML, SINGLE DOSE
     Dates: start: 20050207, end: 20050207
  5. OMNISCAN [Suspect]
     Indication: ABDOMINAL PAIN
     Dosage: 10 ML, SINGLE DOSE; 10 ML, SINGLE DOSE; 10 ML, SINGLE DOSE; 20 ML, SINGLE DOSE
     Dates: start: 20050224, end: 20050224
  6. OMNISCAN [Suspect]
     Indication: CEREBROVASCULAR ACCIDENT
     Dosage: 10 ML, SINGLE DOSE; 10 ML, SINGLE DOSE; 10 ML, SINGLE DOSE; 20 ML, SINGLE DOSE
     Dates: start: 20050224, end: 20050224
  7. OMNISCAN [Suspect]
     Indication: ABDOMINAL PAIN
     Dosage: 10 ML, SINGLE DOSE; 10 ML, SINGLE DOSE; 10 ML, SINGLE DOSE; 20 ML, SINGLE DOSE
     Dates: start: 20051107, end: 20051107
  8. OMNISCAN [Suspect]
     Indication: CEREBROVASCULAR ACCIDENT
     Dosage: 10 ML, SINGLE DOSE; 10 ML, SINGLE DOSE; 10 ML, SINGLE DOSE; 20 ML, SINGLE DOSE
     Dates: start: 20051107, end: 20051107

REACTIONS (19)
  - ABDOMINAL PAIN [None]
  - AZOTAEMIA [None]
  - BLOOD PARATHYROID HORMONE INCREASED [None]
  - DUODENAL ULCER [None]
  - HAEMATOCRIT DECREASED [None]
  - HAEMOGLOBIN DECREASED [None]
  - HEPATIC CIRRHOSIS [None]
  - HYPERTENSION [None]
  - HYPERTROPHIC CARDIOMYOPATHY [None]
  - LUPUS NEPHRITIS [None]
  - NEPHROGENIC SYSTEMIC FIBROSIS [None]
  - NO THERAPEUTIC RESPONSE [None]
  - PANCREATITIS [None]
  - PERITONEAL DIALYSIS [None]
  - PLATELET COUNT DECREASED [None]
  - RENAL HYPERTROPHY [None]
  - RENAL IMPAIRMENT [None]
  - SERUM FERRITIN INCREASED [None]
  - SPLENOMEGALY [None]
